FAERS Safety Report 8980130 (Version 1)
Quarter: 2012Q4

REPORT INFORMATION
  Report Type: 
  Country: NL (occurrence: NL)
  Receive Date: 20121221
  Receipt Date: 20121221
  Transmission Date: 20130627
  Serious: Yes (Death)
  Sender: FDA-Public Use
  Company Number: NL-ROCHE-1172666

PATIENT
  Age: 67 Year
  Sex: Female

DRUGS (4)
  1. MABTHERA [Suspect]
     Indication: RHEUMATOID ARTHRITIS
     Dosage: first infusion
     Route: 042
     Dates: start: 20121121
  2. MABTHERA [Suspect]
     Dosage: second infusion on 05 or 06 Dec 2012
     Route: 042
     Dates: start: 20121205
  3. TAVEGIL (NETHERLANDS) [Concomitant]
  4. PREDNISONE [Concomitant]
     Indication: ANAPHYLACTIC SHOCK
     Route: 065
     Dates: start: 20121121

REACTIONS (1)
  - Death [Fatal]
